FAERS Safety Report 16279975 (Version 1)
Quarter: 2019Q2

REPORT INFORMATION
  Report Type: Spontaneous
  Country: SE (occurrence: SE)
  Receive Date: 20190507
  Receipt Date: 20190507
  Transmission Date: 20190711
  Serious: Yes (Hospitalization)
  Sender: FDA-Public Use
  Company Number: SE-TEVA-2019-SE-1045249

PATIENT
  Age: 35 Year
  Sex: Female

DRUGS (1)
  1. DIMOR [Suspect]
     Active Substance: LOPERAMIDE
     Dosage: 32
     Route: 048
     Dates: start: 20170710, end: 20170710

REACTIONS (4)
  - Intentional overdose [Unknown]
  - Tachycardia [Unknown]
  - Drug abuse [Unknown]
  - Depressed level of consciousness [Unknown]

NARRATIVE: CASE EVENT DATE: 20170710
